FAERS Safety Report 18554947 (Version 1)
Quarter: 2020Q4

REPORT INFORMATION
  Report Type: Spontaneous
  Country: US (occurrence: US)
  Receive Date: 20201127
  Receipt Date: 20201127
  Transmission Date: 20210114
  Serious: Yes (Death, Other)
  Sender: FDA-Public Use
  Company Number: US-PURDUE-USA-2020-0177371

PATIENT
  Sex: Male

DRUGS (1)
  1. HYDROMORPHONE TABLETS [Suspect]
     Active Substance: HYDROMORPHONE
     Indication: BACK PAIN
     Dosage: UNK
     Route: 048

REACTIONS (7)
  - Drug dependence [Unknown]
  - Anxiety [Unknown]
  - Overdose [Unknown]
  - Pain [Unknown]
  - Mental disorder [Unknown]
  - Death [Fatal]
  - Emotional distress [Unknown]

NARRATIVE: CASE EVENT DATE: 20200628
